FAERS Safety Report 18367117 (Version 9)
Quarter: 2021Q3

REPORT INFORMATION
  Report Type: Spontaneous
  Country: PT (occurrence: PT)
  Receive Date: 20201009
  Receipt Date: 20210819
  Transmission Date: 20211014
  Serious: Yes (Death, Life-Threatening, Hospitalization, Other)
  Sender: FDA-Public Use
  Company Number: PT-MYLANLABS-2020M1084946

PATIENT
  Age: 73 Year
  Sex: Female

DRUGS (14)
  1. DIOSMIN [Suspect]
     Active Substance: DIOSMIN
     Indication: PERIPHERAL VENOUS DISEASE
     Dosage: UNK
     Route: 065
  2. IDEBENONE [Concomitant]
     Active Substance: IDEBENONE
     Dosage: UNK
     Route: 048
  3. SIMVASTATIN. [Suspect]
     Active Substance: SIMVASTATIN
     Indication: DYSLIPIDAEMIA
     Dosage: UNK
     Route: 065
  4. OLANZAPINE. [Concomitant]
     Active Substance: OLANZAPINE
     Indication: DEMENTIA ALZHEIMER^S TYPE
     Dosage: UNK
     Route: 048
  5. DIOSMIN [Concomitant]
     Active Substance: DIOSMIN
     Dosage: UNK
     Route: 048
  6. GALANTAMINE. [Suspect]
     Active Substance: GALANTAMINE
     Indication: DEMENTIA ALZHEIMER^S TYPE
     Dosage: UNK
     Route: 065
  7. IDEBENONE [Suspect]
     Active Substance: IDEBENONE
     Indication: DEMENTIA ALZHEIMER^S TYPE
     Dosage: UNK
     Route: 065
  8. IDEBENONE [Suspect]
     Active Substance: IDEBENONE
     Dosage: UNK
     Route: 065
  9. LEVOCETIRIZINE [Suspect]
     Active Substance: LEVOCETIRIZINE
     Dosage: UNK
     Route: 065
  10. OLANZAPINE. [Suspect]
     Active Substance: OLANZAPINE
     Indication: DEMENTIA ALZHEIMER^S TYPE
     Dosage: UNK
     Route: 065
  11. LEVOCETIRIZINE [Suspect]
     Active Substance: LEVOCETIRIZINE
     Indication: PRODUCT USED FOR UNKNOWN INDICATION
     Dosage: UNK
     Route: 065
  12. ACETYLCYSTEINE. [Concomitant]
     Active Substance: ACETYLCYSTEINE
     Dosage: UNK
     Route: 042
  13. SIMVASTATINE [Concomitant]
     Active Substance: SIMVASTATIN
     Dosage: UNK
     Route: 048
  14. LEVOCETIRIZINE [Concomitant]
     Active Substance: LEVOCETIRIZINE
     Dosage: UNK
     Route: 048

REACTIONS (15)
  - Disorientation [Recovering/Resolving]
  - Prothrombin time prolonged [Unknown]
  - Hepatitis acute [Unknown]
  - Toxicity to various agents [Recovering/Resolving]
  - Activated partial thromboplastin time prolonged [Recovering/Resolving]
  - Vomiting [Unknown]
  - Jaundice [Unknown]
  - Drug-induced liver injury [Recovering/Resolving]
  - Hepatitis toxic [Fatal]
  - Hepatic encephalopathy [Unknown]
  - Cholestasis [Unknown]
  - Abdominal pain [Recovering/Resolving]
  - Decreased appetite [Unknown]
  - Fatigue [Unknown]
  - Thrombocytopenia [Unknown]
